FAERS Safety Report 6349543-4 (Version None)
Quarter: 2009Q3

REPORT INFORMATION
  Report Type: 
  Country: None (occurrence: None)
  Receive Date: 20090911
  Receipt Date: 20090903
  Transmission Date: 20100115
  Serious: Yes (Hospitalization, Disabling, Other)
  Sender: FDA-Public Use
  Company Number: JP-B.I. PHARMACEUTICALS,INC./RIDGEFIELD-2009-BP-07935NB

PATIENT
  Sex: Female
  Weight: 40 kg

DRUGS (5)
  1. MOBIC [Suspect]
     Indication: COMPRESSION FRACTURE
     Dosage: 30 MG
     Route: 048
     Dates: start: 20090301, end: 20090617
  2. LOXONIN [Suspect]
     Indication: ARTHRALGIA
     Route: 048
     Dates: start: 20080301, end: 20090401
  3. MEVALOTIN [Concomitant]
     Indication: HYPERLIPIDAEMIA
     Dosage: 10 MG
     Route: 048
     Dates: end: 20090617
  4. ZYLORIC [Concomitant]
     Indication: HYPERURICAEMIA
     Dosage: 300 MG
     Route: 048
     Dates: end: 20090617
  5. TAKEPRON [Concomitant]
     Dosage: 15 MG
     Route: 048
     Dates: start: 20090616

REACTIONS (3)
  - ANTI-NEUTROPHIL CYTOPLASMIC ANTIBODY POSITIVE VASCULITIS [None]
  - OVERDOSE [None]
  - RENAL FAILURE CHRONIC [None]
